FAERS Safety Report 24634175 (Version 1)
Quarter: 2024Q4

REPORT INFORMATION
  Report Type: Spontaneous
  Country: JP (occurrence: JP)
  Receive Date: 20241119
  Receipt Date: 20241119
  Transmission Date: 20250114
  Serious: Yes (Hospitalization, Other)
  Sender: SANDOZ
  Company Number: JP-002147023-NVSC2020JP213355

PATIENT
  Age: 92 Year
  Sex: Female

DRUGS (4)
  1. RECLAST [Suspect]
     Active Substance: ZOLEDRONIC ACID
     Indication: Product used for unknown indication
     Dosage: 5 MG, UNKNOWN
     Route: 041
     Dates: start: 20170621
  2. RECLAST [Suspect]
     Active Substance: ZOLEDRONIC ACID
     Dosage: 5 MG, UNKNOWN
     Route: 041
     Dates: start: 20180606
  3. RECLAST [Suspect]
     Active Substance: ZOLEDRONIC ACID
     Dosage: 5 MG, UNKNOWN
     Route: 041
     Dates: start: 20190708
  4. RECLAST [Suspect]
     Active Substance: ZOLEDRONIC ACID
     Dosage: 5 MG, INJECTION
     Route: 041

REACTIONS (2)
  - Fracture [Unknown]
  - Compression fracture [Recovered/Resolved]

NARRATIVE: CASE EVENT DATE: 20190408
